FAERS Safety Report 5180377-2 (Version None)
Quarter: 2006Q4

REPORT INFORMATION
  Report Type: 
  Country: None (occurrence: None)
  Receive Date: 20060919
  Receipt Date: 20060807
  Transmission Date: 20070319
  Serious: No
  Sender: FDA-Public Use
  Company Number: 2006US001644

PATIENT
  Age: 67 Year
  Sex: Male

DRUGS (2)
  1. VESICARE [Suspect]
     Indication: DRUG USE FOR UNKNOWN INDICATION
     Dosage: 5 MG, QOD, ORAL
     Route: 048
  2. ZOCOR [Suspect]

REACTIONS (1)
  - PAIN IN EXTREMITY [None]
